FAERS Safety Report 21492370 (Version 1)
Quarter: 2022Q4

REPORT INFORMATION
  Report Type: Spontaneous
  Country: US (occurrence: None)
  Receive Date: 20221020
  Receipt Date: 20221020
  Transmission Date: 20230113
  Serious: Yes (Other)
  Sender: FDA-Public Use
  Company Number: None

PATIENT
  Age: 46 Year
  Sex: Female
  Weight: 74.25 kg

DRUGS (6)
  1. LEVOFLOXACIN [Suspect]
     Active Substance: LEVOFLOXACIN
     Indication: Acute sinusitis
     Dosage: OTHER QUANTITY : 1 TABLET(S);?
     Route: 048
     Dates: start: 20221017, end: 20221019
  2. LEVOFLOXACIN [Suspect]
     Active Substance: LEVOFLOXACIN
     Indication: Bronchitis
  3. ATORVASTATIN [Concomitant]
     Active Substance: ATORVASTATIN
  4. levothyroxine 0.025mg [Concomitant]
  5. TOPIRAMATE [Concomitant]
     Active Substance: TOPIRAMATE
  6. NyQuil nighttime [Concomitant]

REACTIONS (4)
  - Paraesthesia [None]
  - Myalgia [None]
  - Musculoskeletal stiffness [None]
  - Gait inability [None]

NARRATIVE: CASE EVENT DATE: 20221019
